FAERS Safety Report 20090110 (Version 3)
Quarter: 2021Q4

REPORT INFORMATION
  Report Type: Report from Study
  Country: US (occurrence: US)
  Receive Date: 20211119
  Receipt Date: 20211229
  Transmission Date: 20220303
  Serious: No
  Sender: FDA-Public Use
  Company Number: US-AMGEN-USASP2021177954

PATIENT
  Age: 69 Year
  Sex: Female

DRUGS (6)
  1. REPATHA [Suspect]
     Active Substance: EVOLOCUMAB
     Indication: Blood cholesterol increased
     Dosage: 140 MILLIGRAM, Q2WK
     Route: 065
     Dates: start: 20211001
  2. REPATHA [Suspect]
     Active Substance: EVOLOCUMAB
     Indication: Hypercholesterolaemia
     Dosage: 140 MILLIGRAM, Q2WK
     Route: 065
     Dates: start: 2021
  3. REPATHA [Suspect]
     Active Substance: EVOLOCUMAB
     Dosage: 140 MILLIGRAM, Q2WK
     Route: 065
  4. COVID-19 VACCINE [Concomitant]
     Dosage: UNK
     Dates: start: 202102
  5. COVID-19 VACCINE [Concomitant]
     Dosage: UNK
     Dates: start: 202103
  6. COVID-19 VACCINE [Concomitant]
     Dosage: BOOSTER VACCINE
     Dates: start: 20211020

REACTIONS (5)
  - Off label use [Unknown]
  - Fear of injection [Unknown]
  - Injection site pain [Unknown]
  - Injection site bruising [Unknown]
  - Injection site haemorrhage [Unknown]
